FAERS Safety Report 23133818 (Version 1)
Quarter: 2023Q4

REPORT INFORMATION
  Report Type: Spontaneous
  Country: US (occurrence: None)
  Receive Date: 20231031
  Receipt Date: 20231031
  Transmission Date: 20240110
  Serious: Yes (Disabling)
  Sender: FDA-Public Use
  Company Number: None

PATIENT
  Age: 48 Year
  Sex: Female
  Weight: 74.25 kg

DRUGS (3)
  1. LUBRICANT EYE DROPS [Suspect]
     Active Substance: POLYETHYLENE GLYCOL 400\PROPYLENE GLYCOL
     Dosage: FREQUENCY : AS NEEDED;?
     Route: 047
     Dates: start: 20231023, end: 20231027
  2. LISINOPRIL [Concomitant]
     Active Substance: LISINOPRIL
  3. VITAMINS [Concomitant]
     Active Substance: VITAMINS

REACTIONS (1)
  - Eye infection [None]

NARRATIVE: CASE EVENT DATE: 20231024
